FAERS Safety Report 5127845-7 (Version None)
Quarter: 2006Q4

REPORT INFORMATION
  Report Type: 
  Country: None (occurrence: None)
  Receive Date: 20061016
  Receipt Date: 20061005
  Transmission Date: 20070319
  Serious: Yes (Hospitalization)
  Sender: FDA-Public Use
  Company Number: US-JNJFOC-20061001598

PATIENT
  Sex: Female
  Weight: 53.98 kg

DRUGS (1)
  1. FENTANYL TRANSDERMAL SYSTEM [Suspect]
     Indication: BACK PAIN
     Route: 062
     Dates: start: 20051201

REACTIONS (5)
  - APPLICATION SITE PRURITUS [None]
  - DYSPNOEA [None]
  - MALNUTRITION [None]
  - PAIN [None]
  - PNEUMONIA [None]
